FAERS Safety Report 18852764 (Version 1)
Quarter: 2021Q1

REPORT INFORMATION
  Report Type: Spontaneous
  Country: US (occurrence: US)
  Receive Date: 20210205
  Receipt Date: 20210205
  Transmission Date: 20210420
  Serious: No
  Sender: FDA-Public Use
  Company Number: None

PATIENT
  Age: 50 Year
  Sex: Male

DRUGS (1)
  1. OXALIPLATIN. [Suspect]
     Active Substance: OXALIPLATIN
     Indication: ADENOCARCINOMA METASTATIC
     Dates: start: 20210204, end: 20210204

REACTIONS (8)
  - Somnolence [None]
  - Heart rate increased [None]
  - Hyperhidrosis [None]
  - Flushing [None]
  - Retching [None]
  - Dizziness [None]
  - Product quality issue [None]
  - Speech disorder [None]

NARRATIVE: CASE EVENT DATE: 20210204
